FAERS Safety Report 18270372 (Version 3)
Quarter: 2020Q3

REPORT INFORMATION
  Report Type: Spontaneous
  Country: US (occurrence: US)
  Receive Date: 20200916
  Receipt Date: 20200923
  Transmission Date: 20201103
  Serious: Yes (Hospitalization, Other)
  Sender: FDA-Public Use
  Company Number: US-PACIRA-202000402

PATIENT
  Age: 16 Year
  Sex: Female

DRUGS (2)
  1. EXPAREL [Suspect]
     Active Substance: BUPIVACAINE
     Indication: BUNION OPERATION
     Dosage: 20 ML ADMIXED WITH 20 ML OF ?% MARCAINE ? TOTAL VOLUME ADMINISTERED 30 CC
     Dates: start: 20200908, end: 20200908
  2. MARCAINE [Suspect]
     Active Substance: BUPIVACAINE HYDROCHLORIDE
     Indication: BUNION OPERATION
     Dosage: 20 ML ADMIXED WITH 20 ML OF EXPAREL ? TOTAL VOLUME ADMINISTERED 30 CC
     Dates: start: 20200908, end: 20200908

REACTIONS (4)
  - Compartment syndrome [Recovering/Resolving]
  - Off label use [Unknown]
  - Product administered to patient of inappropriate age [Unknown]
  - Pulse absent [Recovering/Resolving]

NARRATIVE: CASE EVENT DATE: 20200908
